FAERS Safety Report 18253539 (Version 1)
Quarter: 2020Q3

REPORT INFORMATION
  Report Type: Spontaneous
  Country: GB (occurrence: GB)
  Receive Date: 20200910
  Receipt Date: 20200910
  Transmission Date: 20201103
  Serious: Yes (Other)
  Sender: FDA-Public Use
  Company Number: GB-AMGEN-GBRSP2020144520

PATIENT
  Age: 38 Year
  Sex: Male
  Weight: 89 kg

DRUGS (4)
  1. OMEPRAZOLE. [Concomitant]
     Active Substance: OMEPRAZOLE
  2. ETORICOXIB. [Concomitant]
     Active Substance: ETORICOXIB
  3. TRAMADOL HYDROCHLORIDE. [Concomitant]
     Active Substance: TRAMADOL HYDROCHLORIDE
  4. AMGEVITA [Suspect]
     Active Substance: ADALIMUMAB
     Indication: ENTHESOPATHY
     Dosage: 40 MILLIGRAM, Q2WK
     Route: 058
     Dates: start: 20200528, end: 20200611

REACTIONS (2)
  - Demyelination [Recovering/Resolving]
  - Blindness unilateral [Unknown]

NARRATIVE: CASE EVENT DATE: 20200530
